FAERS Safety Report 11044063 (Version 1)
Quarter: 2015Q2

REPORT INFORMATION
  Report Type: Spontaneous
  Country: US (occurrence: US)
  Receive Date: 20150417
  Receipt Date: 20150417
  Transmission Date: 20150821
  Serious: No
  Sender: FDA-Public Use
  Company Number: US-EMD SERONO-8020342

PATIENT
  Sex: Female

DRUGS (1)
  1. REBIF [Suspect]
     Active Substance: INTERFERON BETA-1A
     Indication: PRODUCT USED FOR UNKNOWN INDICATION
     Route: 058
     Dates: start: 201002

REACTIONS (4)
  - Tremor [Not Recovered/Not Resolved]
  - Asthma [Unknown]
  - Depression [Unknown]
  - Pyrexia [Not Recovered/Not Resolved]
